FAERS Safety Report 13999271 (Version 2)
Quarter: 2019Q4

REPORT INFORMATION
  Report Type: Report from Study
  Country: CA (occurrence: CA)
  Receive Date: 20170922
  Receipt Date: 20191009
  Transmission Date: 20200122
  Serious: Yes (Other)
  Sender: FDA-Public Use
  Company Number: CA-AMGEN-CANSL2017142665

PATIENT
  Age: 65 Year
  Sex: Female

DRUGS (1)
  1. KYPROLIS [Suspect]
     Active Substance: CARFILZOMIB
     Indication: PLASMA CELL MYELOMA
     Dosage: 27 MILLIGRAM/SQ. METER, DAYS 1, 2, 8, 9, 15, 16 Q28 DAYS
     Route: 065
     Dates: start: 20170330, end: 201704

REACTIONS (2)
  - Thrombocytopenia [Unknown]
  - Palliative care [Unknown]

NARRATIVE: CASE EVENT DATE: 2017
